FAERS Safety Report 20103025 (Version 1)
Quarter: 2021Q4

REPORT INFORMATION
  Report Type: Spontaneous
  Country: US (occurrence: US)
  Receive Date: 20211123
  Receipt Date: 20211123
  Transmission Date: 20220303
  Serious: Yes (Hospitalization, Other)
  Sender: FDA-Public Use
  Company Number: US-GILEAD-2021-0557348

PATIENT
  Age: 50 Year
  Sex: Male

DRUGS (9)
  1. VEKLURY [Suspect]
     Active Substance: REMDESIVIR
     Indication: COVID-19
     Route: 065
  2. DEXAMETHASONE [Concomitant]
     Active Substance: DEXAMETHASONE
  3. TOCILIZUMAB [Concomitant]
     Active Substance: TOCILIZUMAB
  4. BARICITINIB [Concomitant]
     Active Substance: BARICITINIB
  5. COVID-19 CONVALESCENT PLASMA [Concomitant]
     Active Substance: COVID-19 CONVALESCENT PLASMA
  6. ANAKINRA [Concomitant]
     Active Substance: ANAKINRA
  7. ACETYLCYSTEINE [Concomitant]
     Active Substance: ACETYLCYSTEINE
  8. VITAMIN C [Concomitant]
     Active Substance: ASCORBIC ACID
  9. ZINC [Concomitant]
     Active Substance: ZINC

REACTIONS (1)
  - Drug ineffective [Unknown]
